FAERS Safety Report 5268437-9 (Version None)
Quarter: 2007Q1

REPORT INFORMATION
  Report Type: 
  Country: None (occurrence: None)
  Receive Date: 20070319
  Receipt Date: 20070306
  Transmission Date: 20070707
  Serious: Yes (Other)
  Sender: FDA-Public Use
  Company Number: US-GLAXOSMITHKLINE-B0461998A

PATIENT
  Age: 41 Year
  Sex: Male

DRUGS (6)
  1. LAMIVUDINE [Suspect]
     Indication: HIV INFECTION
     Route: 065
  2. TENOFOVIR DISOPROXIL FUMARATE [Suspect]
     Indication: HIV INFECTION
     Route: 065
  3. ZIDOVUDINE [Suspect]
     Indication: HIV INFECTION
     Route: 065
  4. NELFINAVIR [Suspect]
     Indication: HIV INFECTION
  5. TRIMETHOPRIM + SULFAMETHOXAZOLE [Concomitant]
     Route: 065
  6. AZITHROMYCIN [Concomitant]
     Route: 065

REACTIONS (3)
  - HEPATIC ENZYME INCREASED [None]
  - HEPATITIS [None]
  - IMMUNE RECONSTITUTION SYNDROME [None]
